FAERS Safety Report 23208132 (Version 56)
Quarter: 2025Q3

REPORT INFORMATION
  Report Type: Spontaneous
  Country: GB (occurrence: GB)
  Receive Date: 20231121
  Receipt Date: 20250815
  Transmission Date: 20251021
  Serious: Yes (Hospitalization, Other)
  Sender: CELLTRION
  Company Number: GB-CELLTRION INC.-2023GB022181

PATIENT

DRUGS (425)
  1. HUMIRA [Suspect]
     Active Substance: ADALIMUMAB
     Indication: Product used for unknown indication
     Route: 058
  2. HUMIRA [Suspect]
     Active Substance: ADALIMUMAB
     Route: 058
  3. HUMIRA [Suspect]
     Active Substance: ADALIMUMAB
     Route: 058
  4. HUMIRA [Suspect]
     Active Substance: ADALIMUMAB
     Route: 058
  5. HUMIRA [Suspect]
     Active Substance: ADALIMUMAB
     Route: 058
  6. HUMIRA [Suspect]
     Active Substance: ADALIMUMAB
     Route: 058
  7. HUMIRA [Suspect]
     Active Substance: ADALIMUMAB
     Route: 058
  8. HUMIRA [Suspect]
     Active Substance: ADALIMUMAB
  9. HUMIRA [Suspect]
     Active Substance: ADALIMUMAB
     Route: 058
  10. HUMIRA [Suspect]
     Active Substance: ADALIMUMAB
     Route: 058
  11. HUMIRA [Suspect]
     Active Substance: ADALIMUMAB
     Route: 058
  12. HUMIRA [Suspect]
     Active Substance: ADALIMUMAB
     Route: 058
  13. HUMIRA [Suspect]
     Active Substance: ADALIMUMAB
     Route: 058
  14. HUMIRA [Suspect]
     Active Substance: ADALIMUMAB
     Route: 058
  15. HUMIRA [Suspect]
     Active Substance: ADALIMUMAB
     Route: 058
  16. HUMIRA [Suspect]
     Active Substance: ADALIMUMAB
     Route: 058
  17. HUMIRA [Suspect]
     Active Substance: ADALIMUMAB
     Route: 058
  18. HUMIRA [Suspect]
     Active Substance: ADALIMUMAB
     Route: 058
  19. HUMIRA [Suspect]
     Active Substance: ADALIMUMAB
     Route: 058
  20. HUMIRA [Suspect]
     Active Substance: ADALIMUMAB
     Route: 058
  21. HUMIRA [Suspect]
     Active Substance: ADALIMUMAB
     Route: 058
  22. HUMIRA [Suspect]
     Active Substance: ADALIMUMAB
     Route: 058
  23. HUMIRA [Suspect]
     Active Substance: ADALIMUMAB
     Route: 058
  24. HUMIRA [Suspect]
     Active Substance: ADALIMUMAB
     Route: 058
  25. HUMIRA [Suspect]
     Active Substance: ADALIMUMAB
     Route: 058
  26. HUMIRA [Suspect]
     Active Substance: ADALIMUMAB
     Route: 058
  27. HUMIRA [Suspect]
     Active Substance: ADALIMUMAB
     Route: 058
  28. HUMIRA [Suspect]
     Active Substance: ADALIMUMAB
     Route: 058
  29. HUMIRA [Suspect]
     Active Substance: ADALIMUMAB
     Route: 058
  30. HUMIRA [Suspect]
     Active Substance: ADALIMUMAB
     Route: 058
  31. HUMIRA [Suspect]
     Active Substance: ADALIMUMAB
     Route: 058
  32. HUMIRA [Suspect]
     Active Substance: ADALIMUMAB
     Route: 058
  33. HUMIRA [Suspect]
     Active Substance: ADALIMUMAB
     Route: 058
  34. HUMIRA [Suspect]
     Active Substance: ADALIMUMAB
     Route: 058
  35. HUMIRA [Suspect]
     Active Substance: ADALIMUMAB
     Route: 058
  36. HUMIRA [Suspect]
     Active Substance: ADALIMUMAB
     Route: 058
  37. HUMIRA [Suspect]
     Active Substance: ADALIMUMAB
     Route: 058
  38. HUMIRA [Suspect]
     Active Substance: ADALIMUMAB
     Route: 058
  39. HUMIRA [Suspect]
     Active Substance: ADALIMUMAB
     Route: 058
  40. HUMIRA [Suspect]
     Active Substance: ADALIMUMAB
     Route: 058
  41. HUMIRA [Suspect]
     Active Substance: ADALIMUMAB
     Route: 058
  42. HUMIRA [Suspect]
     Active Substance: ADALIMUMAB
     Route: 058
  43. HUMIRA [Suspect]
     Active Substance: ADALIMUMAB
     Route: 058
  44. HUMIRA [Suspect]
     Active Substance: ADALIMUMAB
     Route: 058
  45. HUMIRA [Suspect]
     Active Substance: ADALIMUMAB
     Route: 058
  46. HUMIRA [Suspect]
     Active Substance: ADALIMUMAB
     Route: 058
  47. HUMIRA [Suspect]
     Active Substance: ADALIMUMAB
     Route: 058
  48. HUMIRA [Suspect]
     Active Substance: ADALIMUMAB
     Route: 058
  49. HUMIRA [Suspect]
     Active Substance: ADALIMUMAB
     Route: 058
  50. HUMIRA [Suspect]
     Active Substance: ADALIMUMAB
     Route: 058
  51. HUMIRA [Suspect]
     Active Substance: ADALIMUMAB
     Indication: Product used for unknown indication
     Route: 058
  52. HUMIRA [Suspect]
     Active Substance: ADALIMUMAB
     Route: 058
  53. HUMIRA [Suspect]
     Active Substance: ADALIMUMAB
     Route: 058
  54. HUMIRA [Suspect]
     Active Substance: ADALIMUMAB
     Route: 058
  55. HUMIRA [Suspect]
     Active Substance: ADALIMUMAB
     Route: 058
  56. HUMIRA [Suspect]
     Active Substance: ADALIMUMAB
     Route: 058
  57. HUMIRA [Suspect]
     Active Substance: ADALIMUMAB
     Route: 058
  58. HUMIRA [Suspect]
     Active Substance: ADALIMUMAB
     Route: 058
  59. HUMIRA [Suspect]
     Active Substance: ADALIMUMAB
     Route: 058
  60. HUMIRA [Suspect]
     Active Substance: ADALIMUMAB
     Route: 058
  61. HUMIRA [Suspect]
     Active Substance: ADALIMUMAB
     Route: 058
  62. HUMIRA [Suspect]
     Active Substance: ADALIMUMAB
     Route: 058
  63. HUMIRA [Suspect]
     Active Substance: ADALIMUMAB
     Route: 058
  64. HUMIRA [Suspect]
     Active Substance: ADALIMUMAB
     Route: 058
  65. HUMIRA [Suspect]
     Active Substance: ADALIMUMAB
     Route: 058
  66. HUMIRA [Suspect]
     Active Substance: ADALIMUMAB
     Route: 058
  67. HUMIRA [Suspect]
     Active Substance: ADALIMUMAB
     Route: 058
  68. HUMIRA [Suspect]
     Active Substance: ADALIMUMAB
     Route: 058
  69. HUMIRA [Suspect]
     Active Substance: ADALIMUMAB
     Route: 058
  70. HUMIRA [Suspect]
     Active Substance: ADALIMUMAB
     Route: 058
  71. HUMIRA [Suspect]
     Active Substance: ADALIMUMAB
     Route: 058
  72. HUMIRA [Suspect]
     Active Substance: ADALIMUMAB
     Route: 058
  73. HUMIRA [Suspect]
     Active Substance: ADALIMUMAB
     Route: 058
  74. HUMIRA [Suspect]
     Active Substance: ADALIMUMAB
     Route: 058
  75. HUMIRA [Suspect]
     Active Substance: ADALIMUMAB
     Route: 058
  76. HUMIRA [Suspect]
     Active Substance: ADALIMUMAB
     Route: 058
  77. HUMIRA [Suspect]
     Active Substance: ADALIMUMAB
     Route: 058
  78. HUMIRA [Suspect]
     Active Substance: ADALIMUMAB
     Route: 058
  79. HUMIRA [Suspect]
     Active Substance: ADALIMUMAB
     Route: 058
  80. HUMIRA [Suspect]
     Active Substance: ADALIMUMAB
     Route: 058
  81. HUMIRA [Suspect]
     Active Substance: ADALIMUMAB
     Route: 058
  82. HUMIRA [Suspect]
     Active Substance: ADALIMUMAB
     Route: 058
  83. HUMIRA [Suspect]
     Active Substance: ADALIMUMAB
     Route: 058
  84. HUMIRA [Suspect]
     Active Substance: ADALIMUMAB
     Route: 058
  85. HUMIRA [Suspect]
     Active Substance: ADALIMUMAB
     Route: 058
  86. HUMIRA [Suspect]
     Active Substance: ADALIMUMAB
     Route: 058
  87. HUMIRA [Suspect]
     Active Substance: ADALIMUMAB
     Route: 058
  88. HUMIRA [Suspect]
     Active Substance: ADALIMUMAB
     Route: 058
  89. HUMIRA [Suspect]
     Active Substance: ADALIMUMAB
     Route: 058
  90. HUMIRA [Suspect]
     Active Substance: ADALIMUMAB
     Route: 058
  91. HUMIRA [Suspect]
     Active Substance: ADALIMUMAB
     Route: 058
  92. HUMIRA [Suspect]
     Active Substance: ADALIMUMAB
     Route: 058
  93. HUMIRA [Suspect]
     Active Substance: ADALIMUMAB
     Route: 058
  94. HUMIRA [Suspect]
     Active Substance: ADALIMUMAB
     Route: 058
  95. HUMIRA [Suspect]
     Active Substance: ADALIMUMAB
     Route: 058
  96. HUMIRA [Suspect]
     Active Substance: ADALIMUMAB
     Route: 058
  97. HUMIRA [Suspect]
     Active Substance: ADALIMUMAB
     Route: 058
  98. HUMIRA [Suspect]
     Active Substance: ADALIMUMAB
     Route: 058
  99. HUMIRA [Suspect]
     Active Substance: ADALIMUMAB
     Route: 058
  100. HUMIRA [Suspect]
     Active Substance: ADALIMUMAB
     Route: 058
  101. HUMIRA [Suspect]
     Active Substance: ADALIMUMAB
     Indication: Product used for unknown indication
     Route: 058
  102. HUMIRA [Suspect]
     Active Substance: ADALIMUMAB
     Route: 058
  103. HUMIRA [Suspect]
     Active Substance: ADALIMUMAB
     Route: 058
  104. HUMIRA [Suspect]
     Active Substance: ADALIMUMAB
     Route: 058
  105. HUMIRA [Suspect]
     Active Substance: ADALIMUMAB
     Route: 058
  106. HUMIRA [Suspect]
     Active Substance: ADALIMUMAB
     Route: 058
  107. HUMIRA [Suspect]
     Active Substance: ADALIMUMAB
     Route: 058
  108. HUMIRA [Suspect]
     Active Substance: ADALIMUMAB
     Route: 058
  109. HUMIRA [Suspect]
     Active Substance: ADALIMUMAB
     Route: 058
  110. HUMIRA [Suspect]
     Active Substance: ADALIMUMAB
     Route: 058
  111. HUMIRA [Suspect]
     Active Substance: ADALIMUMAB
     Route: 058
  112. HUMIRA [Suspect]
     Active Substance: ADALIMUMAB
     Route: 058
  113. HUMIRA [Suspect]
     Active Substance: ADALIMUMAB
     Route: 058
  114. HUMIRA [Suspect]
     Active Substance: ADALIMUMAB
     Route: 058
  115. HUMIRA [Suspect]
     Active Substance: ADALIMUMAB
     Route: 058
  116. HUMIRA [Suspect]
     Active Substance: ADALIMUMAB
     Route: 058
  117. HUMIRA [Suspect]
     Active Substance: ADALIMUMAB
     Route: 058
  118. HUMIRA [Suspect]
     Active Substance: ADALIMUMAB
     Route: 058
  119. HUMIRA [Suspect]
     Active Substance: ADALIMUMAB
     Route: 058
  120. HUMIRA [Suspect]
     Active Substance: ADALIMUMAB
     Route: 058
  121. HUMIRA [Suspect]
     Active Substance: ADALIMUMAB
     Route: 058
  122. HUMIRA [Suspect]
     Active Substance: ADALIMUMAB
     Route: 058
  123. HUMIRA [Suspect]
     Active Substance: ADALIMUMAB
     Route: 058
  124. HUMIRA [Suspect]
     Active Substance: ADALIMUMAB
     Route: 058
  125. HUMIRA [Suspect]
     Active Substance: ADALIMUMAB
     Route: 058
  126. HUMIRA [Suspect]
     Active Substance: ADALIMUMAB
     Route: 058
  127. HUMIRA [Suspect]
     Active Substance: ADALIMUMAB
     Route: 058
  128. HUMIRA [Suspect]
     Active Substance: ADALIMUMAB
     Route: 058
  129. HUMIRA [Suspect]
     Active Substance: ADALIMUMAB
     Route: 058
  130. HUMIRA [Suspect]
     Active Substance: ADALIMUMAB
     Route: 058
  131. HUMIRA [Suspect]
     Active Substance: ADALIMUMAB
     Route: 058
  132. HUMIRA [Suspect]
     Active Substance: ADALIMUMAB
     Route: 058
  133. HUMIRA [Suspect]
     Active Substance: ADALIMUMAB
     Route: 058
  134. HUMIRA [Suspect]
     Active Substance: ADALIMUMAB
     Route: 058
  135. HUMIRA [Suspect]
     Active Substance: ADALIMUMAB
     Route: 058
  136. HUMIRA [Suspect]
     Active Substance: ADALIMUMAB
     Route: 058
  137. HUMIRA [Suspect]
     Active Substance: ADALIMUMAB
     Route: 058
  138. HUMIRA [Suspect]
     Active Substance: ADALIMUMAB
     Route: 058
  139. HUMIRA [Suspect]
     Active Substance: ADALIMUMAB
     Route: 058
  140. ADALIMUMAB [Suspect]
     Active Substance: ADALIMUMAB
     Indication: Product used for unknown indication
     Route: 058
  141. ADALIMUMAB [Suspect]
     Active Substance: ADALIMUMAB
     Route: 058
  142. ADALIMUMAB [Suspect]
     Active Substance: ADALIMUMAB
     Route: 058
  143. ADALIMUMAB [Suspect]
     Active Substance: ADALIMUMAB
     Route: 058
  144. ADALIMUMAB [Suspect]
     Active Substance: ADALIMUMAB
     Route: 058
  145. ADALIMUMAB [Suspect]
     Active Substance: ADALIMUMAB
     Route: 058
  146. ADALIMUMAB [Suspect]
     Active Substance: ADALIMUMAB
     Route: 058
  147. ADALIMUMAB [Suspect]
     Active Substance: ADALIMUMAB
  148. ADALIMUMAB [Suspect]
     Active Substance: ADALIMUMAB
     Route: 058
  149. ADALIMUMAB [Suspect]
     Active Substance: ADALIMUMAB
     Route: 058
  150. ADALIMUMAB [Suspect]
     Active Substance: ADALIMUMAB
     Route: 058
  151. ADALIMUMAB [Suspect]
     Active Substance: ADALIMUMAB
     Route: 058
  152. ADALIMUMAB [Suspect]
     Active Substance: ADALIMUMAB
     Route: 058
  153. ADALIMUMAB [Suspect]
     Active Substance: ADALIMUMAB
     Route: 058
  154. ADALIMUMAB [Suspect]
     Active Substance: ADALIMUMAB
     Route: 058
  155. ADALIMUMAB [Suspect]
     Active Substance: ADALIMUMAB
     Route: 058
  156. ADALIMUMAB [Suspect]
     Active Substance: ADALIMUMAB
     Route: 058
  157. ADALIMUMAB [Suspect]
     Active Substance: ADALIMUMAB
     Route: 058
  158. ADALIMUMAB [Suspect]
     Active Substance: ADALIMUMAB
     Route: 058
  159. ADALIMUMAB [Suspect]
     Active Substance: ADALIMUMAB
     Route: 058
  160. ADALIMUMAB [Suspect]
     Active Substance: ADALIMUMAB
     Route: 058
  161. ADALIMUMAB [Suspect]
     Active Substance: ADALIMUMAB
     Route: 058
  162. ADALIMUMAB [Suspect]
     Active Substance: ADALIMUMAB
     Route: 058
  163. ADALIMUMAB [Suspect]
     Active Substance: ADALIMUMAB
     Route: 058
  164. ADALIMUMAB [Suspect]
     Active Substance: ADALIMUMAB
     Route: 058
  165. ADALIMUMAB [Suspect]
     Active Substance: ADALIMUMAB
     Route: 058
  166. ADALIMUMAB [Suspect]
     Active Substance: ADALIMUMAB
     Route: 058
  167. ADALIMUMAB [Suspect]
     Active Substance: ADALIMUMAB
     Route: 058
  168. ADALIMUMAB [Suspect]
     Active Substance: ADALIMUMAB
     Route: 058
  169. ADALIMUMAB [Suspect]
     Active Substance: ADALIMUMAB
     Route: 065
  170. ADALIMUMAB [Suspect]
     Active Substance: ADALIMUMAB
     Route: 058
  171. ADALIMUMAB [Suspect]
     Active Substance: ADALIMUMAB
     Route: 058
  172. ADALIMUMAB [Suspect]
     Active Substance: ADALIMUMAB
     Route: 058
  173. ADALIMUMAB [Suspect]
     Active Substance: ADALIMUMAB
     Route: 058
  174. ADALIMUMAB [Suspect]
     Active Substance: ADALIMUMAB
     Route: 058
  175. ADALIMUMAB [Suspect]
     Active Substance: ADALIMUMAB
     Route: 058
  176. ADALIMUMAB [Suspect]
     Active Substance: ADALIMUMAB
     Route: 058
  177. ADALIMUMAB [Suspect]
     Active Substance: ADALIMUMAB
     Route: 058
  178. ADALIMUMAB [Suspect]
     Active Substance: ADALIMUMAB
     Route: 058
  179. ADALIMUMAB [Suspect]
     Active Substance: ADALIMUMAB
     Route: 065
  180. ADALIMUMAB [Suspect]
     Active Substance: ADALIMUMAB
     Route: 058
  181. ADALIMUMAB [Suspect]
     Active Substance: ADALIMUMAB
     Route: 058
  182. ADALIMUMAB [Suspect]
     Active Substance: ADALIMUMAB
     Route: 058
  183. ADALIMUMAB [Suspect]
     Active Substance: ADALIMUMAB
     Route: 058
  184. ADALIMUMAB [Suspect]
     Active Substance: ADALIMUMAB
     Route: 058
  185. ADALIMUMAB [Suspect]
     Active Substance: ADALIMUMAB
     Route: 058
  186. ADALIMUMAB [Suspect]
     Active Substance: ADALIMUMAB
     Route: 058
  187. ADALIMUMAB [Suspect]
     Active Substance: ADALIMUMAB
     Route: 058
  188. ADALIMUMAB [Suspect]
     Active Substance: ADALIMUMAB
     Route: 058
  189. ADALIMUMAB [Suspect]
     Active Substance: ADALIMUMAB
     Route: 058
  190. ADALIMUMAB [Suspect]
     Active Substance: ADALIMUMAB
     Indication: Product used for unknown indication
     Route: 058
  191. ADALIMUMAB [Suspect]
     Active Substance: ADALIMUMAB
     Route: 058
  192. ADALIMUMAB [Suspect]
     Active Substance: ADALIMUMAB
     Route: 058
  193. ADALIMUMAB [Suspect]
     Active Substance: ADALIMUMAB
     Route: 058
  194. ADALIMUMAB [Suspect]
     Active Substance: ADALIMUMAB
     Route: 058
  195. ADALIMUMAB [Suspect]
     Active Substance: ADALIMUMAB
     Route: 058
  196. ADALIMUMAB [Suspect]
     Active Substance: ADALIMUMAB
     Route: 058
  197. ADALIMUMAB [Suspect]
     Active Substance: ADALIMUMAB
     Route: 058
  198. ADALIMUMAB [Suspect]
     Active Substance: ADALIMUMAB
     Route: 058
  199. ADALIMUMAB [Suspect]
     Active Substance: ADALIMUMAB
     Route: 058
  200. ADALIMUMAB [Suspect]
     Active Substance: ADALIMUMAB
     Route: 058
  201. ADALIMUMAB [Suspect]
     Active Substance: ADALIMUMAB
     Route: 058
  202. ADALIMUMAB [Suspect]
     Active Substance: ADALIMUMAB
     Route: 058
  203. ADALIMUMAB [Suspect]
     Active Substance: ADALIMUMAB
     Route: 058
  204. ADALIMUMAB [Suspect]
     Active Substance: ADALIMUMAB
     Route: 058
  205. ADALIMUMAB [Suspect]
     Active Substance: ADALIMUMAB
     Route: 058
  206. ADALIMUMAB [Suspect]
     Active Substance: ADALIMUMAB
     Route: 058
  207. ADALIMUMAB [Suspect]
     Active Substance: ADALIMUMAB
     Route: 058
  208. ADALIMUMAB [Suspect]
     Active Substance: ADALIMUMAB
     Route: 058
  209. ADALIMUMAB [Suspect]
     Active Substance: ADALIMUMAB
     Route: 058
  210. ADALIMUMAB [Suspect]
     Active Substance: ADALIMUMAB
     Route: 058
  211. ADALIMUMAB [Suspect]
     Active Substance: ADALIMUMAB
     Route: 058
  212. ADALIMUMAB [Suspect]
     Active Substance: ADALIMUMAB
     Route: 058
  213. ADALIMUMAB [Suspect]
     Active Substance: ADALIMUMAB
  214. ADALIMUMAB [Suspect]
     Active Substance: ADALIMUMAB
  215. ADALIMUMAB [Suspect]
     Active Substance: ADALIMUMAB
  216. ADALIMUMAB [Suspect]
     Active Substance: ADALIMUMAB
  217. ADALIMUMAB [Suspect]
     Active Substance: ADALIMUMAB
     Route: 058
  218. ADALIMUMAB [Suspect]
     Active Substance: ADALIMUMAB
     Route: 058
  219. ADALIMUMAB [Suspect]
     Active Substance: ADALIMUMAB
     Route: 058
  220. ADALIMUMAB [Suspect]
     Active Substance: ADALIMUMAB
     Route: 058
  221. ADALIMUMAB [Suspect]
     Active Substance: ADALIMUMAB
     Route: 058
  222. ADALIMUMAB [Suspect]
     Active Substance: ADALIMUMAB
     Route: 058
  223. ADALIMUMAB [Suspect]
     Active Substance: ADALIMUMAB
     Route: 058
  224. ADALIMUMAB [Suspect]
     Active Substance: ADALIMUMAB
     Route: 058
  225. ADALIMUMAB [Suspect]
     Active Substance: ADALIMUMAB
     Route: 058
  226. ADALIMUMAB [Suspect]
     Active Substance: ADALIMUMAB
     Route: 058
  227. ADALIMUMAB [Suspect]
     Active Substance: ADALIMUMAB
     Route: 058
  228. ADALIMUMAB [Suspect]
     Active Substance: ADALIMUMAB
     Route: 058
  229. ADALIMUMAB [Suspect]
     Active Substance: ADALIMUMAB
     Route: 058
  230. ADALIMUMAB [Suspect]
     Active Substance: ADALIMUMAB
     Route: 058
  231. ADALIMUMAB [Suspect]
     Active Substance: ADALIMUMAB
     Route: 058
  232. ADALIMUMAB [Suspect]
     Active Substance: ADALIMUMAB
     Route: 058
  233. ADALIMUMAB [Suspect]
     Active Substance: ADALIMUMAB
     Route: 065
  234. ADALIMUMAB [Suspect]
     Active Substance: ADALIMUMAB
     Route: 065
  235. ADALIMUMAB [Suspect]
     Active Substance: ADALIMUMAB
     Route: 065
  236. ADALIMUMAB [Suspect]
     Active Substance: ADALIMUMAB
     Route: 065
  237. ADALIMUMAB [Suspect]
     Active Substance: ADALIMUMAB
     Route: 065
  238. ADALIMUMAB [Suspect]
     Active Substance: ADALIMUMAB
     Route: 065
  239. ADALIMUMAB [Suspect]
     Active Substance: ADALIMUMAB
     Route: 065
  240. ADALIMUMAB [Suspect]
     Active Substance: ADALIMUMAB
     Indication: Product used for unknown indication
     Route: 058
  241. ADALIMUMAB [Suspect]
     Active Substance: ADALIMUMAB
     Route: 058
  242. ADALIMUMAB [Suspect]
     Active Substance: ADALIMUMAB
     Route: 058
  243. ADALIMUMAB [Suspect]
     Active Substance: ADALIMUMAB
     Route: 058
  244. ADALIMUMAB [Suspect]
     Active Substance: ADALIMUMAB
     Route: 058
  245. ADALIMUMAB [Suspect]
     Active Substance: ADALIMUMAB
     Route: 065
  246. ADALIMUMAB [Suspect]
     Active Substance: ADALIMUMAB
     Route: 065
  247. ADALIMUMAB [Suspect]
     Active Substance: ADALIMUMAB
     Route: 058
  248. ADALIMUMAB [Suspect]
     Active Substance: ADALIMUMAB
     Route: 058
  249. ADALIMUMAB [Suspect]
     Active Substance: ADALIMUMAB
     Route: 058
  250. ADALIMUMAB [Suspect]
     Active Substance: ADALIMUMAB
     Route: 058
  251. ADALIMUMAB [Suspect]
     Active Substance: ADALIMUMAB
     Route: 058
  252. ADALIMUMAB [Suspect]
     Active Substance: ADALIMUMAB
     Route: 058
  253. ADALIMUMAB [Suspect]
     Active Substance: ADALIMUMAB
     Route: 058
  254. ADALIMUMAB [Suspect]
     Active Substance: ADALIMUMAB
     Route: 058
  255. ADALIMUMAB [Suspect]
     Active Substance: ADALIMUMAB
     Route: 058
  256. ADALIMUMAB [Suspect]
     Active Substance: ADALIMUMAB
     Route: 058
  257. ADALIMUMAB [Suspect]
     Active Substance: ADALIMUMAB
     Route: 058
  258. ADALIMUMAB [Suspect]
     Active Substance: ADALIMUMAB
     Route: 058
  259. ADALIMUMAB [Suspect]
     Active Substance: ADALIMUMAB
     Route: 058
  260. ADALIMUMAB [Suspect]
     Active Substance: ADALIMUMAB
     Route: 058
  261. ADALIMUMAB [Suspect]
     Active Substance: ADALIMUMAB
     Route: 058
  262. ADALIMUMAB [Suspect]
     Active Substance: ADALIMUMAB
     Route: 058
  263. ADALIMUMAB [Suspect]
     Active Substance: ADALIMUMAB
     Route: 058
  264. ADALIMUMAB [Suspect]
     Active Substance: ADALIMUMAB
     Route: 058
  265. ADALIMUMAB [Suspect]
     Active Substance: ADALIMUMAB
     Route: 058
  266. ADALIMUMAB [Suspect]
     Active Substance: ADALIMUMAB
     Route: 058
  267. ADALIMUMAB [Suspect]
     Active Substance: ADALIMUMAB
     Route: 058
  268. ADALIMUMAB [Suspect]
     Active Substance: ADALIMUMAB
     Route: 058
  269. ADALIMUMAB [Suspect]
     Active Substance: ADALIMUMAB
     Route: 058
  270. ADALIMUMAB [Suspect]
     Active Substance: ADALIMUMAB
     Route: 058
  271. ADALIMUMAB [Suspect]
     Active Substance: ADALIMUMAB
     Route: 058
  272. ADALIMUMAB [Suspect]
     Active Substance: ADALIMUMAB
     Route: 058
  273. ADALIMUMAB [Suspect]
     Active Substance: ADALIMUMAB
     Route: 058
  274. ADALIMUMAB [Suspect]
     Active Substance: ADALIMUMAB
     Route: 058
  275. ADALIMUMAB [Suspect]
     Active Substance: ADALIMUMAB
     Route: 058
  276. ADALIMUMAB [Suspect]
     Active Substance: ADALIMUMAB
     Route: 058
  277. ADALIMUMAB [Suspect]
     Active Substance: ADALIMUMAB
     Route: 058
  278. ADALIMUMAB [Suspect]
     Active Substance: ADALIMUMAB
     Route: 058
  279. SECUKINUMAB [Suspect]
     Active Substance: SECUKINUMAB
     Indication: Product used for unknown indication
  280. SECUKINUMAB [Suspect]
     Active Substance: SECUKINUMAB
  281. SECUKINUMAB [Suspect]
     Active Substance: SECUKINUMAB
  282. SECUKINUMAB [Suspect]
     Active Substance: SECUKINUMAB
  283. SECUKINUMAB [Suspect]
     Active Substance: SECUKINUMAB
  284. SECUKINUMAB [Suspect]
     Active Substance: SECUKINUMAB
  285. SECUKINUMAB [Suspect]
     Active Substance: SECUKINUMAB
  286. SECUKINUMAB [Suspect]
     Active Substance: SECUKINUMAB
     Route: 058
  287. SECUKINUMAB [Suspect]
     Active Substance: SECUKINUMAB
  288. SECUKINUMAB [Suspect]
     Active Substance: SECUKINUMAB
  289. SECUKINUMAB [Suspect]
     Active Substance: SECUKINUMAB
  290. SECUKINUMAB [Suspect]
     Active Substance: SECUKINUMAB
  291. SECUKINUMAB [Suspect]
     Active Substance: SECUKINUMAB
  292. SECUKINUMAB [Suspect]
     Active Substance: SECUKINUMAB
  293. SECUKINUMAB [Suspect]
     Active Substance: SECUKINUMAB
     Route: 065
  294. SECUKINUMAB [Suspect]
     Active Substance: SECUKINUMAB
     Route: 058
  295. SECUKINUMAB [Suspect]
     Active Substance: SECUKINUMAB
     Route: 065
  296. SECUKINUMAB [Suspect]
     Active Substance: SECUKINUMAB
  297. SECUKINUMAB [Suspect]
     Active Substance: SECUKINUMAB
     Route: 065
  298. SECUKINUMAB [Suspect]
     Active Substance: SECUKINUMAB
     Route: 065
  299. SECUKINUMAB [Suspect]
     Active Substance: SECUKINUMAB
  300. SECUKINUMAB [Suspect]
     Active Substance: SECUKINUMAB
     Route: 058
  301. SECUKINUMAB [Suspect]
     Active Substance: SECUKINUMAB
  302. SECUKINUMAB [Suspect]
     Active Substance: SECUKINUMAB
  303. SECUKINUMAB [Suspect]
     Active Substance: SECUKINUMAB
     Route: 058
  304. SECUKINUMAB [Suspect]
     Active Substance: SECUKINUMAB
     Route: 058
  305. SECUKINUMAB [Suspect]
     Active Substance: SECUKINUMAB
     Indication: Product used for unknown indication
     Route: 058
  306. SECUKINUMAB [Suspect]
     Active Substance: SECUKINUMAB
     Route: 058
  307. SECUKINUMAB [Suspect]
     Active Substance: SECUKINUMAB
     Route: 058
  308. SECUKINUMAB [Suspect]
     Active Substance: SECUKINUMAB
     Route: 058
  309. SECUKINUMAB [Suspect]
     Active Substance: SECUKINUMAB
     Route: 058
  310. SECUKINUMAB [Suspect]
     Active Substance: SECUKINUMAB
     Route: 058
  311. SECUKINUMAB [Suspect]
     Active Substance: SECUKINUMAB
     Route: 058
  312. SECUKINUMAB [Suspect]
     Active Substance: SECUKINUMAB
     Route: 058
  313. SECUKINUMAB [Suspect]
     Active Substance: SECUKINUMAB
     Route: 058
  314. SECUKINUMAB [Suspect]
     Active Substance: SECUKINUMAB
     Route: 058
  315. SECUKINUMAB [Suspect]
     Active Substance: SECUKINUMAB
     Route: 058
  316. SECUKINUMAB [Suspect]
     Active Substance: SECUKINUMAB
     Route: 058
  317. SECUKINUMAB [Suspect]
     Active Substance: SECUKINUMAB
     Route: 058
  318. SECUKINUMAB [Suspect]
     Active Substance: SECUKINUMAB
     Route: 058
  319. SECUKINUMAB [Suspect]
     Active Substance: SECUKINUMAB
     Route: 058
  320. SECUKINUMAB [Suspect]
     Active Substance: SECUKINUMAB
     Route: 058
  321. SECUKINUMAB [Suspect]
     Active Substance: SECUKINUMAB
     Route: 058
  322. SECUKINUMAB [Suspect]
     Active Substance: SECUKINUMAB
     Route: 058
  323. SECUKINUMAB [Suspect]
     Active Substance: SECUKINUMAB
     Route: 058
  324. SECUKINUMAB [Suspect]
     Active Substance: SECUKINUMAB
     Route: 058
  325. SECUKINUMAB [Suspect]
     Active Substance: SECUKINUMAB
     Route: 058
  326. SECUKINUMAB [Suspect]
     Active Substance: SECUKINUMAB
     Route: 058
  327. SECUKINUMAB [Suspect]
     Active Substance: SECUKINUMAB
     Route: 058
  328. SECUKINUMAB [Suspect]
     Active Substance: SECUKINUMAB
     Route: 058
  329. SECUKINUMAB [Suspect]
     Active Substance: SECUKINUMAB
     Route: 058
  330. SECUKINUMAB [Suspect]
     Active Substance: SECUKINUMAB
     Route: 058
  331. SECUKINUMAB [Suspect]
     Active Substance: SECUKINUMAB
     Route: 058
  332. SECUKINUMAB [Suspect]
     Active Substance: SECUKINUMAB
     Route: 058
  333. SECUKINUMAB [Suspect]
     Active Substance: SECUKINUMAB
     Route: 058
  334. SECUKINUMAB [Suspect]
     Active Substance: SECUKINUMAB
     Route: 058
  335. SECUKINUMAB [Suspect]
     Active Substance: SECUKINUMAB
     Route: 058
  336. SECUKINUMAB [Suspect]
     Active Substance: SECUKINUMAB
     Route: 058
  337. SECUKINUMAB [Suspect]
     Active Substance: SECUKINUMAB
     Route: 058
  338. SECUKINUMAB [Suspect]
     Active Substance: SECUKINUMAB
     Route: 058
  339. SECUKINUMAB [Suspect]
     Active Substance: SECUKINUMAB
     Route: 058
  340. SECUKINUMAB [Suspect]
     Active Substance: SECUKINUMAB
     Route: 058
  341. SECUKINUMAB [Suspect]
     Active Substance: SECUKINUMAB
     Route: 058
  342. SECUKINUMAB [Suspect]
     Active Substance: SECUKINUMAB
     Route: 065
  343. SECUKINUMAB [Suspect]
     Active Substance: SECUKINUMAB
     Route: 065
  344. SECUKINUMAB [Suspect]
     Active Substance: SECUKINUMAB
     Route: 065
  345. SECUKINUMAB [Suspect]
     Active Substance: SECUKINUMAB
     Route: 065
  346. SECUKINUMAB [Suspect]
     Active Substance: SECUKINUMAB
     Route: 065
  347. SECUKINUMAB [Suspect]
     Active Substance: SECUKINUMAB
     Route: 065
  348. SECUKINUMAB [Suspect]
     Active Substance: SECUKINUMAB
     Route: 058
  349. SECUKINUMAB [Suspect]
     Active Substance: SECUKINUMAB
     Route: 058
  350. SECUKINUMAB [Suspect]
     Active Substance: SECUKINUMAB
     Route: 058
  351. SECUKINUMAB [Suspect]
     Active Substance: SECUKINUMAB
     Route: 065
  352. SECUKINUMAB [Suspect]
     Active Substance: SECUKINUMAB
     Route: 065
  353. SECUKINUMAB [Suspect]
     Active Substance: SECUKINUMAB
     Route: 058
  354. SECUKINUMAB [Suspect]
     Active Substance: SECUKINUMAB
     Route: 058
  355. SECUKINUMAB [Suspect]
     Active Substance: SECUKINUMAB
     Indication: Product used for unknown indication
  356. SECUKINUMAB [Suspect]
     Active Substance: SECUKINUMAB
  357. SECUKINUMAB [Suspect]
     Active Substance: SECUKINUMAB
  358. SECUKINUMAB [Suspect]
     Active Substance: SECUKINUMAB
     Route: 058
  359. SECUKINUMAB [Suspect]
     Active Substance: SECUKINUMAB
     Route: 058
  360. PALBOCICLIB [Suspect]
     Active Substance: PALBOCICLIB
     Indication: Breast cancer
     Route: 048
     Dates: start: 20240221, end: 20240423
  361. PALBOCICLIB [Suspect]
     Active Substance: PALBOCICLIB
     Indication: Breast cancer female
     Route: 048
     Dates: start: 20240221, end: 20240423
  362. PALBOCICLIB [Suspect]
     Active Substance: PALBOCICLIB
     Indication: Breast cancer
     Route: 048
     Dates: start: 20240221, end: 20240423
  363. PALBOCICLIB [Suspect]
     Active Substance: PALBOCICLIB
     Indication: Breast cancer female
     Route: 048
     Dates: start: 20240221, end: 20240423
  364. PALBOCICLIB [Suspect]
     Active Substance: PALBOCICLIB
     Indication: Breast cancer
     Route: 048
     Dates: start: 20240221, end: 20240423
  365. PALBOCICLIB [Suspect]
     Active Substance: PALBOCICLIB
     Route: 048
     Dates: start: 20240221, end: 20240423
  366. PALBOCICLIB [Suspect]
     Active Substance: PALBOCICLIB
     Indication: Breast cancer
     Route: 048
     Dates: start: 20240221, end: 20240423
  367. PALBOCICLIB [Suspect]
     Active Substance: PALBOCICLIB
     Route: 048
     Dates: start: 20240221, end: 20240423
  368. PALBOCICLIB [Suspect]
     Active Substance: PALBOCICLIB
     Route: 048
     Dates: start: 20240221, end: 20240424
  369. LETROZOLE [Suspect]
     Active Substance: LETROZOLE
     Indication: Breast cancer
     Route: 048
     Dates: start: 20240221, end: 20240430
  370. LETROZOLE [Suspect]
     Active Substance: LETROZOLE
     Indication: Breast cancer female
     Route: 048
     Dates: start: 20240221, end: 20240430
  371. LETROZOLE [Suspect]
     Active Substance: LETROZOLE
     Indication: Breast cancer
     Route: 048
     Dates: start: 20240221, end: 20240430
  372. LETROZOLE [Suspect]
     Active Substance: LETROZOLE
     Route: 048
     Dates: start: 20240221, end: 20240430
  373. LETROZOLE [Suspect]
     Active Substance: LETROZOLE
     Route: 048
     Dates: start: 20240221, end: 20240430
  374. LETROZOLE [Suspect]
     Active Substance: LETROZOLE
     Route: 048
     Dates: start: 20240221, end: 20240430
  375. LETROZOLE [Suspect]
     Active Substance: LETROZOLE
     Route: 048
     Dates: start: 20240221, end: 20240430
  376. LETROZOLE [Suspect]
     Active Substance: LETROZOLE
     Route: 048
     Dates: start: 20240221, end: 20240430
  377. LETROZOLE [Suspect]
     Active Substance: LETROZOLE
     Route: 048
     Dates: start: 20240221
  378. LETROZOLE [Suspect]
     Active Substance: LETROZOLE
     Dates: start: 20240221, end: 20240430
  379. LETROZOLE [Suspect]
     Active Substance: LETROZOLE
     Route: 048
     Dates: start: 20240221, end: 20240430
  380. SECUKINUMAB [Suspect]
     Active Substance: SECUKINUMAB
     Indication: Product used for unknown indication
     Route: 065
  381. SECUKINUMAB [Suspect]
     Active Substance: SECUKINUMAB
     Route: 065
  382. SECUKINUMAB [Suspect]
     Active Substance: SECUKINUMAB
     Route: 058
  383. SECUKINUMAB [Suspect]
     Active Substance: SECUKINUMAB
     Route: 058
  384. SECUKINUMAB [Suspect]
     Active Substance: SECUKINUMAB
     Route: 058
  385. SECUKINUMAB [Suspect]
     Active Substance: SECUKINUMAB
     Route: 058
  386. SECUKINUMAB [Suspect]
     Active Substance: SECUKINUMAB
     Route: 058
  387. SECUKINUMAB [Suspect]
     Active Substance: SECUKINUMAB
     Route: 058
  388. SECUKINUMAB [Suspect]
     Active Substance: SECUKINUMAB
     Route: 065
  389. SECUKINUMAB [Suspect]
     Active Substance: SECUKINUMAB
     Route: 058
  390. SECUKINUMAB [Suspect]
     Active Substance: SECUKINUMAB
     Route: 065
  391. SECUKINUMAB [Suspect]
     Active Substance: SECUKINUMAB
     Route: 065
  392. SECUKINUMAB [Suspect]
     Active Substance: SECUKINUMAB
     Route: 065
  393. SECUKINUMAB [Suspect]
     Active Substance: SECUKINUMAB
     Route: 065
  394. SECUKINUMAB [Suspect]
     Active Substance: SECUKINUMAB
     Route: 065
  395. SECUKINUMAB [Suspect]
     Active Substance: SECUKINUMAB
     Route: 058
  396. SECUKINUMAB [Suspect]
     Active Substance: SECUKINUMAB
     Route: 058
  397. SECUKINUMAB [Suspect]
     Active Substance: SECUKINUMAB
     Route: 058
  398. SECUKINUMAB [Suspect]
     Active Substance: SECUKINUMAB
     Route: 058
  399. SECUKINUMAB [Suspect]
     Active Substance: SECUKINUMAB
     Route: 058
  400. SECUKINUMAB [Suspect]
     Active Substance: SECUKINUMAB
     Route: 058
  401. SECUKINUMAB [Suspect]
     Active Substance: SECUKINUMAB
     Route: 058
  402. SECUKINUMAB [Suspect]
     Active Substance: SECUKINUMAB
     Route: 058
  403. SECUKINUMAB [Suspect]
     Active Substance: SECUKINUMAB
     Route: 058
  404. SECUKINUMAB [Suspect]
     Active Substance: SECUKINUMAB
     Route: 058
  405. SECUKINUMAB [Suspect]
     Active Substance: SECUKINUMAB
     Route: 058
  406. SECUKINUMAB [Suspect]
     Active Substance: SECUKINUMAB
     Route: 058
  407. SECUKINUMAB [Suspect]
     Active Substance: SECUKINUMAB
     Route: 065
  408. SECUKINUMAB [Suspect]
     Active Substance: SECUKINUMAB
     Route: 065
  409. SECUKINUMAB [Suspect]
     Active Substance: SECUKINUMAB
     Route: 065
  410. SECUKINUMAB [Suspect]
     Active Substance: SECUKINUMAB
     Route: 058
  411. SECUKINUMAB [Suspect]
     Active Substance: SECUKINUMAB
     Route: 058
  412. SECUKINUMAB [Suspect]
     Active Substance: SECUKINUMAB
     Route: 058
  413. SECUKINUMAB [Suspect]
     Active Substance: SECUKINUMAB
     Route: 058
  414. SECUKINUMAB [Suspect]
     Active Substance: SECUKINUMAB
     Route: 058
  415. SECUKINUMAB [Suspect]
     Active Substance: SECUKINUMAB
     Route: 058
  416. SECUKINUMAB [Suspect]
     Active Substance: SECUKINUMAB
     Route: 058
  417. EDOXABAN TOSYLATE [Concomitant]
     Active Substance: EDOXABAN TOSYLATE
     Indication: Product used for unknown indication
     Route: 048
     Dates: start: 202401
  418. EDOXABAN TOSYLATE [Concomitant]
     Active Substance: EDOXABAN TOSYLATE
     Route: 065
     Dates: start: 202401, end: 202401
  419. EDOXABAN TOSYLATE [Concomitant]
     Active Substance: EDOXABAN TOSYLATE
     Route: 048
     Dates: start: 202401, end: 202401
  420. EDOXABAN TOSYLATE [Concomitant]
     Active Substance: EDOXABAN TOSYLATE
     Route: 065
     Dates: start: 202401, end: 202401
  421. EDOXABAN TOSYLATE [Concomitant]
     Active Substance: EDOXABAN TOSYLATE
     Route: 048
  422. EDOXABAN TOSYLATE [Concomitant]
     Active Substance: EDOXABAN TOSYLATE
     Route: 048
  423. EDOXABAN TOSYLATE [Concomitant]
     Active Substance: EDOXABAN TOSYLATE
     Route: 048
     Dates: start: 202401
  424. EDOXABAN TOSYLATE [Concomitant]
     Active Substance: EDOXABAN TOSYLATE
     Route: 048
     Dates: start: 202401, end: 202401
  425. EDOXABAN TOSYLATE [Concomitant]
     Active Substance: EDOXABAN TOSYLATE
     Route: 048
     Dates: start: 202401

REACTIONS (5)
  - Metastases to bone [Unknown]
  - Neoplasm progression [Unknown]
  - White blood cell count decreased [Unknown]
  - Anaemia [Recovered/Resolved]
  - Systemic lupus erythematosus [Unknown]

NARRATIVE: CASE EVENT DATE: 20240330
